FAERS Safety Report 20675800 (Version 3)
Quarter: 2022Q2

REPORT INFORMATION
  Report Type: Spontaneous
  Country: HU (occurrence: HU)
  Receive Date: 20220405
  Receipt Date: 20220419
  Transmission Date: 20220720
  Serious: Yes (Hospitalization, Other)
  Sender: FDA-Public Use
  Company Number: HU-NOVARTISPH-NVSC2022HU076823

PATIENT
  Age: 63 Year
  Sex: Female

DRUGS (2)
  1. ADALIMUMAB [Suspect]
     Active Substance: ADALIMUMAB
     Indication: Psoriatic arthropathy
     Dosage: UNK
     Route: 065
  2. ADALIMUMAB [Suspect]
     Active Substance: ADALIMUMAB
     Indication: Psoriasis
     Dosage: 1 DOSE IN 2 WEEKS (Q2W)
     Route: 058

REACTIONS (15)
  - Lung adenocarcinoma [Unknown]
  - Dermatomyositis [Unknown]
  - Rash papular [Unknown]
  - Joint range of motion decreased [Unknown]
  - Arthralgia [Unknown]
  - Skin plaque [Unknown]
  - Oedema peripheral [Unknown]
  - Skin exfoliation [Unknown]
  - Muscular weakness [Unknown]
  - Telangiectasia [Unknown]
  - Sunburn [Unknown]
  - Gait inability [Unknown]
  - Skin lesion [Unknown]
  - Paraneoplastic dermatomyositis [Unknown]
  - Rash pruritic [Unknown]
